FAERS Safety Report 5234410-X (Version None)
Quarter: 2007Q1

REPORT INFORMATION
  Report Type: 
  Country: None (occurrence: None)
  Receive Date: 20070209
  Receipt Date: 20070130
  Transmission Date: 20070707
  Serious: Yes (Other)
  Sender: FDA-Public Use
  Company Number: CR-ROCHE-481326

PATIENT
  Age: 52 Year
  Sex: Female

DRUGS (1)
  1. XENICAL [Suspect]
     Indication: OBESITY
     Route: 048
     Dates: start: 20061122, end: 20070112

REACTIONS (1)
  - BLOOD AMYLASE INCREASED [None]
